FAERS Safety Report 5215621-6 (Version None)
Quarter: 2007Q1

REPORT INFORMATION
  Report Type: 
  Country: None (occurrence: None)
  Receive Date: 20070123
  Receipt Date: 20070116
  Transmission Date: 20070707
  Serious: Yes (Death, Hospitalization, Other)
  Sender: FDA-Public Use
  Company Number: US-ELI_LILLY_AND_COMPANY-US200701003729

PATIENT
  Age: 40 Year
  Sex: Female
  Weight: 82.2 kg

DRUGS (10)
  1. GEMZAR [Suspect]
     Indication: BREAST CANCER METASTATIC
     Dosage: UNK, OTHER
     Route: 042
     Dates: start: 20060915
  2. VITAMIN CAP [Concomitant]
     Indication: VITAMIN SUPPLEMENTATION
     Dosage: UNK, UNK
     Dates: start: 20040601
  3. CLOBETASOL PROPIONATE [Concomitant]
     Indication: ECZEMA
     Dosage: UNK, UNK
     Dates: start: 19800101
  4. COMPAZINE [Concomitant]
     Indication: NAUSEA
     Dosage: UNK, UNK
     Dates: start: 20060526
  5. TYLENOL                                 /USA/ [Concomitant]
     Indication: PAIN
     Dosage: UNK, UNK
     Dates: start: 20040601
  6. PROPOXYPHENE HYDROCHLORIDE [Concomitant]
     Indication: PAIN
     Dosage: UNK, UNK
     Dates: start: 20060526
  7. ZOFRAN [Concomitant]
     Indication: NAUSEA
     Dosage: UNK, UNK
     Dates: start: 20060526
  8. VICODIN [Concomitant]
     Indication: PAIN
     Dosage: UNK, UNK
     Dates: start: 20060623
  9. IMODIUM [Concomitant]
     Indication: DIARRHOEA
     Dosage: UNK, UNK
     Dates: start: 20060623
  10. COLACE [Concomitant]
     Indication: CONSTIPATION
     Dosage: UNK, UNK
     Dates: start: 20060625

REACTIONS (8)
  - ACUTE RESPIRATORY FAILURE [None]
  - ALOPECIA [None]
  - DECREASED APPETITE [None]
  - ERYTHEMA [None]
  - MALIGNANT NEOPLASM PROGRESSION [None]
  - PAIN [None]
  - PNEUMONIA [None]
  - SINUS TACHYCARDIA [None]
